FAERS Safety Report 7317147-2 (Version None)
Quarter: 2011Q1

REPORT INFORMATION
  Report Type: 
  Country: None (occurrence: None)
  Receive Date: 20110226
  Receipt Date: 20100929
  Transmission Date: 20110831
  Serious: No
  Sender: FDA-Public Use
  Company Number: US-ALLERGAN-1012572US

PATIENT
  Sex: Female

DRUGS (2)
  1. BOTOX COSMETIC [Suspect]
     Indication: SKIN WRINKLING
     Dosage: 40 UNK, UNK
     Route: 030
     Dates: start: 20100515, end: 20100515
  2. BOTOX COSMETIC [Suspect]
     Dosage: 36 UNITS, SINGLE
     Route: 030
     Dates: start: 20100901, end: 20100901

REACTIONS (5)
  - RASH MACULAR [None]
  - DRUG INEFFECTIVE [None]
  - INJECTION SITE SWELLING [None]
  - ERYTHEMA [None]
  - PRURITUS [None]
